FAERS Safety Report 10756338 (Version 2)
Quarter: 2015Q1

REPORT INFORMATION
  Report Type: Spontaneous
  Country: JP (occurrence: JP)
  Receive Date: 20150202
  Receipt Date: 20150216
  Transmission Date: 20150721
  Serious: Yes (Hospitalization)
  Sender: FDA-Public Use
  Company Number: JP-GLAXOSMITHKLINE-JP2015JPN010583

PATIENT
  Age: 76 Year
  Sex: Male

DRUGS (14)
  1. ONBREZ [Concomitant]
     Active Substance: INDACATEROL
  2. LOPEMIN [Concomitant]
     Active Substance: LOPERAMIDE HYDROCHLORIDE
  3. BONOTEO [Concomitant]
     Active Substance: MINODRONIC ACID
  4. PARIET [Concomitant]
     Active Substance: RABEPRAZOLE SODIUM
  5. CLARITHROMYCIN. [Concomitant]
     Active Substance: CLARITHROMYCIN
  6. ZETIA [Concomitant]
     Active Substance: EZETIMIBE
  7. PREDNISOLONE. [Concomitant]
     Active Substance: PREDNISOLONE
  8. CHINESE MEDICINE [Concomitant]
     Active Substance: UNSPECIFIED INGREDIENT
  9. ZYLORIC [Suspect]
     Active Substance: ALLOPURINOL
     Route: 048
  10. CHINESE MEDICINE [Concomitant]
     Active Substance: UNSPECIFIED INGREDIENT
  11. AVOLVE [Suspect]
     Active Substance: DUTASTERIDE
     Indication: BENIGN PROSTATIC HYPERPLASIA
     Dosage: 0.5 MG, QD
     Route: 048
     Dates: start: 20140904
  12. CRESTOR [Concomitant]
     Active Substance: ROSUVASTATIN CALCIUM
  13. EQUA [Concomitant]
     Active Substance: VILDAGLIPTIN
  14. RESTREAM [Concomitant]

REACTIONS (2)
  - Polyp [Unknown]
  - Hepatic function abnormal [Recovered/Resolved]

NARRATIVE: CASE EVENT DATE: 20150127
